FAERS Safety Report 23327046 (Version 1)
Quarter: 2023Q4

REPORT INFORMATION
  Report Type: Spontaneous
  Country: US (occurrence: None)
  Receive Date: 20231221
  Receipt Date: 20231221
  Transmission Date: 20240110
  Serious: No
  Sender: FDA-Public Use
  Company Number: None

PATIENT
  Age: 58 Year
  Sex: 0

DRUGS (3)
  1. RINVOQ [Suspect]
     Active Substance: UPADACITINIB
  2. ADVIL [Concomitant]
     Active Substance: IBUPROFEN
  3. PREDNISONE [Concomitant]
     Active Substance: PREDNISONE

REACTIONS (11)
  - Neck pain [None]
  - Arthralgia [None]
  - Back pain [None]
  - Breast pain [None]
  - Pain [None]
  - Abdominal pain upper [None]
  - Stress [None]
  - Large intestinal ulcer [None]
  - Defaecation disorder [None]
  - Therapy interrupted [None]
  - Intestinal mucosal tear [None]

NARRATIVE: CASE EVENT DATE: 20231221
